FAERS Safety Report 20966661 (Version 1)
Quarter: 2022Q2

REPORT INFORMATION
  Report Type: Spontaneous
  Country: US (occurrence: None)
  Receive Date: 20220615
  Receipt Date: 20220615
  Transmission Date: 20220721
  Serious: Yes (Hospitalization, Other)
  Sender: FDA-Public Use
  Company Number: None

PATIENT
  Age: 38 Year
  Sex: Male
  Weight: 73.4 kg

DRUGS (4)
  1. THYROGLOBULIN [Suspect]
     Active Substance: THYROGLOBULIN
     Indication: Product used for unknown indication
  2. ACYCLOVIR [Concomitant]
     Active Substance: ACYCLOVIR
     Dates: start: 20220320
  3. ATOVAQUONE [Concomitant]
     Active Substance: ATOVAQUONE
     Dates: start: 20220320
  4. POSACONAZOLE [Concomitant]
     Active Substance: POSACONAZOLE
     Dates: start: 20220321

REACTIONS (3)
  - Serum sickness [None]
  - Myalgia [None]
  - Infusion related reaction [None]

NARRATIVE: CASE EVENT DATE: 20220301
